FAERS Safety Report 5333536-X (Version None)
Quarter: 2007Q2

REPORT INFORMATION
  Report Type: 
  Country: None (occurrence: None)
  Receive Date: 20070521
  Receipt Date: 20070509
  Transmission Date: 20071010
  Serious: Yes (Hospitalization, Other)
  Sender: FDA-Public Use
  Company Number: 16447

PATIENT
  Age: 66 Year
  Sex: Male

DRUGS (2)
  1. MITOMYCIN [Suspect]
     Indication: PERITONEAL MESOTHELIOMA MALIGNANT RECURRENT
     Dosage: 30 MG FREQ UNK IP
     Route: 033
  2. MITOMYCIN [Suspect]
     Indication: PERITONEAL MESOTHELIOMA MALIGNANT RECURRENT
     Dosage: 10 MG FREQ IP
     Route: 033

REACTIONS (10)
  - ERYTHEMA [None]
  - EXPOSURE TO TOXIC AGENT [None]
  - FIBROSIS [None]
  - IMPAIRED HEALING [None]
  - SCROTAL OEDEMA [None]
  - SCROTAL PAIN [None]
  - SCROTAL ULCER [None]
  - SKIN FIBROSIS [None]
  - SKIN INFLAMMATION [None]
  - SKIN NECROSIS [None]
